FAERS Safety Report 9055670 (Version 3)
Quarter: 2013Q1

REPORT INFORMATION
  Report Type: Report from Study
  Country: ES (occurrence: ES)
  Receive Date: 20130206
  Receipt Date: 20130220
  Transmission Date: 20140127
  Serious: Yes (Death, Hospitalization)
  Sender: FDA-Public Use
  Company Number: ES-ROCHE-1187466

PATIENT
  Age: 43 None
  Sex: Male
  Weight: 62.5 kg

DRUGS (19)
  1. BEVACIZUMAB [Suspect]
     Indication: COLON CANCER
     Dosage: CYCLE 1
     Route: 042
     Dates: start: 20121220
  2. BEVACIZUMAB [Suspect]
     Dosage: CYCLE 2. LAST DOSE PRIOR TO SAE: 22/JAN/2013
     Route: 065
     Dates: start: 20130122
  3. OXALIPLATIN [Suspect]
     Indication: COLON CANCER
     Dosage: CYCLE 1
     Route: 042
     Dates: start: 20121220
  4. OXALIPLATIN [Suspect]
     Dosage: CYCLE 2. LAST DOSE PRIOR TO SAE: 22/JAN/2013
     Route: 065
     Dates: start: 20130122
  5. IRINOTECAN [Suspect]
     Indication: COLON CANCER
     Dosage: CYCLE 1
     Route: 042
     Dates: start: 20121220
  6. IRINOTECAN [Suspect]
     Dosage: CYCLE 2. LAST DOSE PRIOR TO SAE: 22/JAN/2013
     Route: 065
     Dates: start: 20130122
  7. FLUOROURACIL [Suspect]
     Indication: COLON CANCER
     Dosage: CYCLE 1.
     Route: 042
     Dates: start: 20121220
  8. FLUOROURACIL [Suspect]
     Dosage: CYCLE 1.
     Route: 065
     Dates: start: 20121221
  9. FLUOROURACIL [Suspect]
     Dosage: CYCLE 2. LAST DOSE PRIOR TO SAE: 22/JAN/2013
     Route: 065
     Dates: start: 20130122
  10. FOLINIC ACID [Suspect]
     Indication: COLON CANCER
     Dosage: CYCLE 1
     Route: 042
     Dates: start: 20121220
  11. FOLINIC ACID [Suspect]
     Dosage: CYCLE 2. LAST DOSE PRIOR TO SAE: 22/JAN/2013
     Route: 042
     Dates: start: 20130122
  12. ALDACTONE [Concomitant]
     Indication: OEDEMA
     Route: 048
     Dates: start: 20121219
  13. FUROSEMIDA [Concomitant]
     Indication: OEDEMA
     Route: 048
     Dates: start: 20121219
  14. OMEPRAZOL [Concomitant]
     Indication: PROPHYLAXIS
     Route: 048
     Dates: start: 201211
  15. DIAZEPAM [Concomitant]
     Indication: ANXIETY
     Route: 048
     Dates: start: 20121115
  16. NOLOTIL [Concomitant]
     Indication: TUMOUR PAIN
     Route: 048
     Dates: start: 201212
  17. TARGIN [Concomitant]
     Indication: PAIN
     Route: 065
     Dates: start: 20120123
  18. SEVREDOL [Concomitant]
     Indication: TUMOUR PAIN
     Dosage: 10/5MG/12HRS
     Route: 065
     Dates: start: 20121123
  19. FORTECORTIN [Concomitant]
     Indication: PROPHYLAXIS
     Route: 065
     Dates: start: 201211

REACTIONS (2)
  - Neutropenic sepsis [Fatal]
  - Tumour lysis syndrome [Fatal]
